FAERS Safety Report 18358393 (Version 2)
Quarter: 2021Q1

REPORT INFORMATION
  Report Type: Spontaneous
  Country: NL (occurrence: NL)
  Receive Date: 20201008
  Receipt Date: 20210210
  Transmission Date: 20210419
  Serious: Yes (Hospitalization)
  Sender: FDA-Public Use
  Company Number: NL-SA-2020SA276013

PATIENT
  Age: 55 Year
  Sex: Female
  Weight: 81.7 kg

DRUGS (9)
  1. RITUXIMAB. [Suspect]
     Active Substance: RITUXIMAB
     Dosage: 3 DF
     Dates: start: 20200902, end: 20200916
  2. LISINOPRIL. [Concomitant]
     Active Substance: LISINOPRIL
     Dosage: TABLET, 20 MG (MILLIGRAM)
  3. PANTOZOLE [Concomitant]
     Active Substance: PANTOPRAZOLE SODIUM
     Dosage: MAAGSAPRESISTENTE TABLET, 40 MG (MILLIGRAM)
  4. CABLIVI [Suspect]
     Active Substance: CAPLACIZUMAB-YHDP
     Indication: THROMBOTIC THROMBOCYTOPENIC PURPURA
     Dosage: 10 MG, QD
     Route: 058
     Dates: start: 20200817, end: 20200916
  5. PREDNISOLON [PREDNISONE] [Concomitant]
     Active Substance: PREDNISONE
     Dosage: INJECTIEVLOEISTOF, 10 MG/ML (MILLIGRAM PER MILLILITER)
     Dates: end: 20200901
  6. EUTHYROX [Concomitant]
     Active Substance: LEVOTHYROXINE SODIUM
     Dosage: TABLET, 137 ?G (MICROGRAM)
  7. COTRIMOXAZOL [Concomitant]
     Active Substance: SULFAMETHOXAZOLE\TRIMETHOPRIM
     Dosage: TABLET, 80/400 MG (MILLIGRAM)
  8. COLECALCIFEROL [Concomitant]
     Active Substance: CHOLECALCIFEROL
     Dosage: CAPSULE, 400 EENHEDEN
  9. AMOXICILLINE/CLAVULAANZUUR [Concomitant]
     Active Substance: AMOXICILLIN\CLAVULANATE POTASSIUM
     Dosage: TABLET, 500/125 MG (MILLIGRAM)

REACTIONS (11)
  - Arthralgia [Recovering/Resolving]
  - Rash pruritic [Unknown]
  - Erythema [Unknown]
  - Headache [Unknown]
  - Serum sickness [Recovering/Resolving]
  - Pyrexia [Unknown]
  - Nausea [Unknown]
  - Rash macular [Recovering/Resolving]
  - Complement factor decreased [Recovering/Resolving]
  - Diarrhoea [Unknown]
  - Myalgia [Recovering/Resolving]

NARRATIVE: CASE EVENT DATE: 202009
